FAERS Safety Report 15341653 (Version 2)
Quarter: 2018Q4

REPORT INFORMATION
  Report Type: Spontaneous
  Country: DE (occurrence: DE)
  Receive Date: 20180901
  Receipt Date: 20181001
  Transmission Date: 20190204
  Serious: Yes (Other)
  Sender: FDA-Public Use
  Company Number: DE-SUN PHARMACEUTICAL INDUSTRIES LTD-2018RR-183128

PATIENT
  Age: 47 Year
  Sex: Female

DRUGS (5)
  1. METOPROLOL. [Concomitant]
     Active Substance: METOPROLOL
     Indication: PRODUCT USED FOR UNKNOWN INDICATION
     Dosage: ()
     Route: 065
  2. BISOPROLOL [Concomitant]
     Active Substance: BISOPROLOL
     Indication: PRODUCT USED FOR UNKNOWN INDICATION
     Dosage: ()
     Route: 065
  3. ATORVASTATIN [Suspect]
     Active Substance: ATORVASTATIN
     Indication: PRODUCT USED FOR UNKNOWN INDICATION
     Dosage: ()
     Route: 065
     Dates: end: 20180430
  4. TOCILIZUMAB. [Suspect]
     Active Substance: TOCILIZUMAB
     Indication: RHEUMATOID ARTHRITIS
     Dosage: 162 MG, 1/WEEK
     Route: 058
     Dates: start: 20170125, end: 20180817
  5. OLUMIANT [Concomitant]
     Active Substance: BARICITINIB
     Indication: PRODUCT USED FOR UNKNOWN INDICATION
     Dosage: ()
     Route: 065
     Dates: start: 20180817

REACTIONS (24)
  - Weight decreased [Unknown]
  - Cystitis noninfective [Not Recovered/Not Resolved]
  - Blood cholesterol increased [Recovered/Resolved]
  - Constipation [Not Recovered/Not Resolved]
  - Osteitis [Recovered/Resolved]
  - Gastritis [Not Recovered/Not Resolved]
  - Thrombosis [Not Recovered/Not Resolved]
  - Gastric ulcer [Recovered/Resolved]
  - Dyspnoea [Recovering/Resolving]
  - White blood cell count decreased [Not Recovered/Not Resolved]
  - Herpes virus infection [Recovered/Resolved]
  - Ill-defined disorder [Recovered/Resolved]
  - Diarrhoea [Recovered/Resolved]
  - Arthralgia [Not Recovered/Not Resolved]
  - Abdominal pain [Not Recovered/Not Resolved]
  - Weight increased [Recovered/Resolved]
  - Laryngeal inflammation [Not Recovered/Not Resolved]
  - Liver function test increased [Recovering/Resolving]
  - Hyperhidrosis [Recovering/Resolving]
  - Uterine inflammation [Recovered/Resolved]
  - Pain in extremity [Recovered/Resolved]
  - Pain in extremity [Not Recovered/Not Resolved]
  - Fluid retention [Not Recovered/Not Resolved]
  - Oropharyngeal pain [Not Recovered/Not Resolved]

NARRATIVE: CASE EVENT DATE: 20170125
